FAERS Safety Report 8493700-8 (Version None)
Quarter: 2012Q3

REPORT INFORMATION
  Report Type: 
  Country: None (occurrence: None)
  Receive Date: 20120706
  Receipt Date: 20120418
  Transmission Date: 20120928
  Serious: Yes (Other)
  Sender: FDA-Public Use
  Company Number: NL-ROXANE LABORATORIES, INC.-2012-EU-02150GD

PATIENT
  Sex: Female

DRUGS (2)
  1. NAPROXEN [Suspect]
     Indication: BONE PAIN
     Dosage: 1500 MG
  2. PREDNISONE [Suspect]
     Indication: ASTHMA
     Dosage: 15 MG

REACTIONS (13)
  - HYPERKALAEMIA [None]
  - OSTEOPOROSIS [None]
  - HYPOTENSION [None]
  - HYPONATRAEMIA [None]
  - MUSCLE ATROPHY [None]
  - HYPOALDOSTERONISM [None]
  - MYOPATHY [None]
  - DIABETES MELLITUS [None]
  - BONE PAIN [None]
  - CUSHING'S SYNDROME [None]
  - ADRENAL INSUFFICIENCY [None]
  - MALAISE [None]
  - SALT CRAVING [None]
